FAERS Safety Report 13623592 (Version 1)
Quarter: 2017Q2

REPORT INFORMATION
  Report Type: Spontaneous
  Country: US (occurrence: US)
  Receive Date: 20170607
  Receipt Date: 20170607
  Transmission Date: 20170830
  Serious: Yes (Hospitalization, Other)
  Sender: FDA-Public Use
  Company Number: US-WEST-WARD PHARMACEUTICALS CORP.-US-H14001-17-01840

PATIENT
  Age: 23 Year
  Sex: Male

DRUGS (3)
  1. PREDNISONE. [Suspect]
     Active Substance: PREDNISONE
     Indication: DERMATOMYOSITIS
     Route: 065
  2. PREDNISONE. [Suspect]
     Active Substance: PREDNISONE
     Route: 065
  3. AZATHIOPRINE. [Concomitant]
     Active Substance: AZATHIOPRINE
     Indication: PRODUCT USED FOR UNKNOWN INDICATION
     Route: 065

REACTIONS (6)
  - Lipohypertrophy [Unknown]
  - Skin ulcer [Unknown]
  - Impaired healing [Unknown]
  - Acne [Unknown]
  - Skin striae [Unknown]
  - Cushingoid [Unknown]
